FAERS Safety Report 23084224 (Version 2)
Quarter: 2023Q4

REPORT INFORMATION
  Report Type: Report from Study
  Country: US (occurrence: US)
  Receive Date: 20231019
  Receipt Date: 20231121
  Transmission Date: 20240110
  Serious: Yes (Hospitalization, Other)
  Sender: FDA-Public Use
  Company Number: US-JNJFOC-20231031081

PATIENT
  Age: 54 Year
  Sex: Male

DRUGS (3)
  1. SPRAVATO [Suspect]
     Active Substance: ESKETAMINE
     Indication: Depression
     Dosage: ^56 MG, 1 TOTAL DOSE^
     Dates: start: 20230918, end: 20230918
  2. SPRAVATO [Suspect]
     Active Substance: ESKETAMINE
     Dosage: ^84 MG, 2 TOTAL DOSES^
     Dates: start: 20230922, end: 20230925
  3. SPRAVATO [Suspect]
     Active Substance: ESKETAMINE
     Dosage: ^56 MG, RECENT ADMINISTERED DOSE^
     Dates: start: 20230929, end: 20230929

REACTIONS (8)
  - Heart rate decreased [Recovering/Resolving]
  - Blood pressure increased [Unknown]
  - Headache [Recovered/Resolved]
  - Nasal discomfort [Recovered/Resolved]
  - Lethargy [Unknown]
  - Drug ineffective [Unknown]
  - Feeling abnormal [Unknown]
  - Product taste abnormal [Unknown]

NARRATIVE: CASE EVENT DATE: 20230901
